FAERS Safety Report 5894242-6 (Version None)
Quarter: 2008Q3

REPORT INFORMATION
  Report Type: 
  Country: None (occurrence: None)
  Receive Date: 20080923
  Receipt Date: 20080307
  Transmission Date: 20090109
  Serious: No
  Sender: FDA-Public Use
  Company Number: US-ASTRAZENECA-2008UW04759

PATIENT
  Age: 44 Year
  Sex: Female

DRUGS (7)
  1. SEROQUEL [Suspect]
     Route: 048
     Dates: start: 20080221, end: 20080229
  2. PHENOBARBITAL TAB [Concomitant]
  3. TEGRETOL [Concomitant]
  4. PROZAC [Concomitant]
  5. TRAZODONE HCL [Concomitant]
  6. PRILOSEC [Concomitant]
  7. PENICILLIN [Concomitant]

REACTIONS (3)
  - DRUG INTERACTION [None]
  - DYSKINESIA [None]
  - DYSTONIA [None]
